FAERS Safety Report 12838761 (Version 1)
Quarter: 2016Q4

REPORT INFORMATION
  Report Type: Spontaneous
  Country: US (occurrence: US)
  Receive Date: 20161012
  Receipt Date: 20161012
  Transmission Date: 20170207
  Serious: No
  Sender: FDA-Public Use
  Company Number: US-PFIZER INC-2016465729

PATIENT
  Sex: Female

DRUGS (1)
  1. XELJANZ [Suspect]
     Active Substance: TOFACITINIB CITRATE
     Dosage: 5 MG, UNK

REACTIONS (7)
  - Dry mouth [Unknown]
  - Arthralgia [Unknown]
  - Alopecia [Unknown]
  - Weight increased [Unknown]
  - Muscular weakness [Unknown]
  - Balance disorder [Unknown]
  - Dry eye [Unknown]
